FAERS Safety Report 4884035-0 (Version None)
Quarter: 2005Q4

REPORT INFORMATION
  Report Type: 
  Country: None (occurrence: None)
  Receive Date: 20051201
  Receipt Date: 20050908
  Transmission Date: 20060501
  Serious: No
  Sender: FDA-Public Use
  Company Number: 2005PV001842

PATIENT
  Age: 59 Year
  Sex: Female
  Weight: 97.5234 kg

DRUGS (5)
  1. BYETTA [Suspect]
     Indication: DIABETES MELLITUS NON-INSULIN-DEPENDENT
     Dosage: SEE IMAGE
     Route: 058
     Dates: start: 20050729
  2. HUMALOG [Concomitant]
  3. ERYTHROMYCIN [Concomitant]
  4. MAALOX FAST BLOCKER [Concomitant]
  5. TUMS [Concomitant]

REACTIONS (3)
  - DYSPEPSIA [None]
  - HICCUPS [None]
  - NAUSEA [None]
